FAERS Safety Report 10080816 (Version 2)
Quarter: 2014Q2

REPORT INFORMATION
  Report Type: Spontaneous
  Country: US (occurrence: US)
  Receive Date: 20140416
  Receipt Date: 20140513
  Transmission Date: 20141212
  Serious: No
  Sender: FDA-Public Use
  Company Number: US-009507513-1404USA002318

PATIENT
  Age: 28 Year
  Sex: Female

DRUGS (5)
  1. PEGINTRON [Suspect]
     Indication: HEPATITIS C
     Dosage: 0.5 ML, QW
     Route: 058
     Dates: start: 20140331
  2. REBETOL [Suspect]
     Indication: HEPATITIS C
     Dosage: 3 PILLS BID
     Route: 048
     Dates: start: 20140331
  3. METHADONE HYDROCHLORIDE [Concomitant]
     Dosage: ONCE A DAY
  4. IBUPROFEN [Concomitant]
     Dosage: ONE EVERY 6 HOURS IF NEEDED
  5. SOVALDI [Concomitant]
     Dosage: ONE DAILY

REACTIONS (3)
  - Pain [Unknown]
  - Vomiting [Unknown]
  - Headache [Not Recovered/Not Resolved]
